FAERS Safety Report 9104005 (Version 1)
Quarter: 2013Q1

REPORT INFORMATION
  Report Type: Spontaneous
  Country: US (occurrence: US)
  Receive Date: 20130219
  Receipt Date: 20130219
  Transmission Date: 20140127
  Serious: Yes (Other)
  Sender: FDA-Public Use
  Company Number: US-PFIZER INC-2013061521

PATIENT
  Age: 29 Year
  Sex: Female
  Weight: 65.76 kg

DRUGS (6)
  1. LYRICA [Suspect]
     Indication: PAIN
     Dosage: 75 MG, 3X/DAY
     Route: 048
     Dates: end: 201202
  2. LYRICA [Suspect]
     Indication: BACK PAIN
  3. LYRICA [Suspect]
     Indication: NECK PAIN
  4. LYRICA [Suspect]
     Indication: PAIN IN EXTREMITY
  5. LYRICA [Suspect]
     Indication: ARTHROPATHY
  6. NORFLEX [Concomitant]
     Indication: MUSCLE SPASMS
     Dosage: 100 MG, 2X/DAY

REACTIONS (3)
  - Pain [Not Recovered/Not Resolved]
  - Fall [Unknown]
  - Joint injury [Unknown]
